FAERS Safety Report 5056268-4 (Version None)
Quarter: 2006Q3

REPORT INFORMATION
  Report Type: 
  Country: None (occurrence: None)
  Receive Date: 20060717
  Receipt Date: 20060703
  Transmission Date: 20061208
  Serious: Yes (Hospitalization)
  Sender: FDA-Public Use
  Company Number: 2006075400

PATIENT
  Age: 39 Year
  Sex: Female
  Weight: 55 kg

DRUGS (3)
  1. RELPAX [Suspect]
     Indication: MIGRAINE WITH AURA
     Dosage: 20 MG (AS NECESSARY), ORAL
     Route: 048
     Dates: start: 20060527, end: 20060527
  2. DOMPERIDONE (DOMPERIDONE) [Concomitant]
  3. TIZANIDINE HCL [Concomitant]

REACTIONS (3)
  - RESPIRATORY DISTRESS [None]
  - SINUS ARRHYTHMIA [None]
  - THROAT TIGHTNESS [None]
